FAERS Safety Report 5965217-3 (Version None)
Quarter: 2008Q4

REPORT INFORMATION
  Report Type: 
  Country: None (occurrence: None)
  Receive Date: 20081125
  Receipt Date: 20081110
  Transmission Date: 20090506
  Serious: Yes (Hospitalization)
  Sender: FDA-Public Use
  Company Number: US-BIOGENIDEC-2008BI024657

PATIENT
  Age: 45 Year
  Sex: Female

DRUGS (1)
  1. TYSABRI [Suspect]
     Indication: MULTIPLE SCLEROSIS
     Route: 042
     Dates: start: 20080314, end: 20080829

REACTIONS (12)
  - ANAEMIA [None]
  - BLOOD PRESSURE DECREASED [None]
  - DYSARTHRIA [None]
  - EYE PAIN [None]
  - HEADACHE [None]
  - HEMIANOPIA [None]
  - HEMIPARESIS [None]
  - HYPERTRANSAMINASAEMIA [None]
  - MOBILITY DECREASED [None]
  - NEUROLOGICAL SYMPTOM [None]
  - REVERSIBLE POSTERIOR LEUKOENCEPHALOPATHY SYNDROME [None]
  - SPINAL EPIDURAL HAEMORRHAGE [None]
